FAERS Safety Report 6958328-7 (Version None)
Quarter: 2010Q3

REPORT INFORMATION
  Report Type: 
  Country: None (occurrence: None)
  Receive Date: 20100831
  Receipt Date: 20100823
  Transmission Date: 20110219
  Serious: Yes (Other)
  Sender: FDA-Public Use
  Company Number: B0671049A

PATIENT
  Sex: Female

DRUGS (2)
  1. CEPAZINE [Suspect]
     Indication: PRODUCT USED FOR UNKNOWN INDICATION
     Dosage: 1UNIT SINGLE DOSE
     Route: 048
     Dates: start: 20090101, end: 20090101
  2. AERIUS [Concomitant]
     Indication: PREMEDICATION
     Route: 065
     Dates: start: 20090901

REACTIONS (9)
  - ANAPHYLACTIC REACTION [None]
  - ANGIOEDEMA [None]
  - DYSPNOEA [None]
  - FEELING HOT [None]
  - HYPERSENSITIVITY [None]
  - MALAISE [None]
  - NAUSEA [None]
  - SKIN TEST POSITIVE [None]
  - URTICARIA [None]
